FAERS Safety Report 8455783-0 (Version None)
Quarter: 2012Q2

REPORT INFORMATION
  Report Type: 
  Country: None (occurrence: None)
  Receive Date: 20120621
  Receipt Date: 20120610
  Transmission Date: 20120825
  Serious: Yes (Life-Threatening)
  Sender: FDA-Public Use
  Company Number: GB-TEVA-342521ISR

PATIENT
  Age: 94 Year
  Sex: Male

DRUGS (1)
  1. NITROFURANTOIN [Suspect]

REACTIONS (1)
  - RENAL FAILURE ACUTE [None]
